FAERS Safety Report 5915637-8 (Version None)
Quarter: 2008Q4

REPORT INFORMATION
  Report Type: 
  Country: None (occurrence: None)
  Receive Date: 20081010
  Receipt Date: 20081002
  Transmission Date: 20090506
  Serious: Yes (Other)
  Sender: FDA-Public Use
  Company Number: BR-ELI_LILLY_AND_COMPANY-BR200810000684

PATIENT
  Age: 68 Year
  Sex: Male

DRUGS (2)
  1. BYETTA [Suspect]
     Dosage: 5 UG, UNKNOWN
     Route: 058
     Dates: start: 20080801
  2. BYETTA [Suspect]
     Dosage: 10 UG, 2/D
     Route: 058

REACTIONS (1)
  - PANCREATITIS [None]
